FAERS Safety Report 9136931 (Version 1)
Quarter: 2013Q1

REPORT INFORMATION
  Report Type: Report from Study
  Country: US (occurrence: US)
  Receive Date: 20130304
  Receipt Date: 20130304
  Transmission Date: 20140127
  Serious: No
  Sender: FDA-Public Use
  Company Number: US-ABBOTT-11P-163-0860627-00

PATIENT
  Sex: Male
  Weight: 75.36 kg

DRUGS (4)
  1. ANDROGEL 1% [Suspect]
     Indication: BLOOD TESTOSTERONE DECREASED
     Dosage: 3 PUMPS DAILY- DAILY DOSE: 7.5 GRAM
     Route: 061
     Dates: start: 2010, end: 2011
  2. ANDROGEL 1% [Suspect]
     Dosage: DOSE: 7.5 GRAM- EVERY OTHER DAY
     Route: 061
     Dates: start: 2011
  3. ANDROGEL 1.62% [Suspect]
     Indication: PRODUCT USED FOR UNKNOWN INDICATION
  4. SIMVASTATIN [Concomitant]
     Indication: PRODUCT USED FOR UNKNOWN INDICATION

REACTIONS (3)
  - Blood pressure increased [Recovering/Resolving]
  - Incorrect route of drug administration [Unknown]
  - Incorrect dose administered [Unknown]
